FAERS Safety Report 6015620-0 (Version None)
Quarter: 2008Q4

REPORT INFORMATION
  Report Type: 
  Country: None (occurrence: None)
  Receive Date: 20081216
  Receipt Date: 20030603
  Transmission Date: 20090506
  Serious: Yes (Congenital Anomaly)
  Sender: FDA-Public Use
  Company Number: HQWYE033613MAR03

PATIENT

DRUGS (3)
  1. EFFEXOR XR [Suspect]
     Indication: ANXIETY
     Dosage: 150 MG 1X PER  DAY, TRANSPLACENTAL
     Route: 064
     Dates: start: 19970101, end: 20020728
  2. EFFEXOR XR [Suspect]
     Indication: DEPRESSION
     Dosage: 150 MG 1X PER  DAY, TRANSPLACENTAL
     Route: 064
     Dates: start: 19970101, end: 20020728
  3. MULTI-VITAMINS [Concomitant]

REACTIONS (1)
  - CYTOGENETIC ABNORMALITY [None]
